FAERS Safety Report 24663131 (Version 2)
Quarter: 2025Q1

REPORT INFORMATION
  Report Type: Report from Study
  Country: US (occurrence: US)
  Receive Date: 20241126
  Receipt Date: 20250204
  Transmission Date: 20250408
  Serious: Yes (Disabling, Other)
  Sender: AMGEN
  Company Number: US-AMGEN-USASL2024231288

PATIENT
  Age: 87 Year
  Sex: Female

DRUGS (2)
  1. PROLIA [Suspect]
     Active Substance: DENOSUMAB
     Indication: Osteoporosis postmenopausal
     Dosage: 60 MILLIGRAM, Q6MO
     Route: 058
  2. TOPROL XL [Concomitant]
     Active Substance: METOPROLOL SUCCINATE
     Dosage: HALF A PILL IN MORNING

REACTIONS (5)
  - Gait disturbance [Unknown]
  - Pain [Unknown]
  - Arthralgia [Unknown]
  - Pain in extremity [Unknown]
  - Back pain [Unknown]

NARRATIVE: CASE EVENT DATE: 20241115
